FAERS Safety Report 4887881-2 (Version None)
Quarter: 2006Q1

REPORT INFORMATION
  Report Type: 
  Country: None (occurrence: None)
  Receive Date: 20060123
  Receipt Date: 20050218
  Transmission Date: 20060701
  Serious: Yes (Hospitalization)
  Sender: FDA-Public Use
  Company Number: US-MERCK-0502USA02826

PATIENT
  Age: 52 Year
  Sex: Female
  Weight: 54 kg

DRUGS (9)
  1. VIOXX [Suspect]
     Indication: ARTHRITIS
     Route: 048
     Dates: start: 19990101, end: 20040101
  2. NORVASC [Concomitant]
     Route: 065
  3. PREVACID [Concomitant]
     Route: 065
  4. LORTAB [Concomitant]
     Route: 065
  5. TOPAMAX [Concomitant]
     Route: 065
  6. ZOLOFT [Concomitant]
     Route: 065
  7. ASPIRIN [Concomitant]
     Route: 065
  8. KLONOPIN [Concomitant]
     Route: 065
  9. LIPITOR [Concomitant]
     Route: 065

REACTIONS (7)
  - ANGINA UNSTABLE [None]
  - CARDIAC DISORDER [None]
  - CORONARY ARTERY DISEASE [None]
  - HYPERTENSION [None]
  - MYOCARDIAL INFARCTION [None]
  - PALPITATIONS [None]
  - SYNCOPE [None]
